FAERS Safety Report 5562948-4 (Version None)
Quarter: 2007Q4

REPORT INFORMATION
  Report Type: 
  Country: None (occurrence: None)
  Receive Date: 20071212
  Receipt Date: 20071212
  Transmission Date: 20080405
  Serious: Yes (Hospitalization)
  Sender: FDA-Public Use
  Company Number: None

PATIENT
  Age: 84 Year
  Sex: Male

DRUGS (1)
  1. SIMVASTATIN [Suspect]
     Indication: HYPERLIPIDAEMIA
     Dosage: 80MG  EVERY  DAY  PO
     Route: 048
     Dates: start: 20020422

REACTIONS (2)
  - INCORRECT DOSE ADMINISTERED [None]
  - RHABDOMYOLYSIS [None]
